FAERS Safety Report 4620395-3 (Version None)
Quarter: 2005Q1

REPORT INFORMATION
  Report Type: 
  Country: None (occurrence: None)
  Receive Date: 20050324
  Receipt Date: 20050314
  Transmission Date: 20050727
  Serious: Yes (Hospitalization)
  Sender: FDA-Public Use
  Company Number: 2005040869

PATIENT
  Age: 56 Year
  Sex: Female
  Weight: 113.3993 kg

DRUGS (7)
  1. BEXTRA [Suspect]
     Indication: OSTEOARTHRITIS
     Dosage: 10 MG (10 MG, 1 IN 1 D), ORAL
     Route: 048
     Dates: start: 20020101
  2. ARTHROTEC [Suspect]
     Indication: OSTEOARTHRITIS
     Dosage: ORAL
     Route: 048
     Dates: start: 20050207, end: 20050210
  3. THEOPHYLLINE [Concomitant]
  4. FLUOXETINE HCL [Concomitant]
  5. MONTELUKAST SODIUM (MONTELUKAST SODIUM) [Concomitant]
  6. CALCIUM (CALCIUM) [Concomitant]
  7. MULTIVITAMINS (ASCORBIC ACID, ERGOCALCIFEROL, FOLIC ACID, NICOTINAMIDE [Concomitant]

REACTIONS (7)
  - ABASIA [None]
  - ARTHRITIS [None]
  - CHEST PAIN [None]
  - CRYING [None]
  - DEATH OF CHILD [None]
  - STRESS [None]
  - WEIGHT INCREASED [None]
